FAERS Safety Report 5283302-9 (Version None)
Quarter: 2007Q2

REPORT INFORMATION
  Report Type: 
  Country: None (occurrence: None)
  Receive Date: 20070402
  Receipt Date: 20070327
  Transmission Date: 20071010
  Serious: Yes (Hospitalization)
  Sender: FDA-Public Use
  Company Number: 2007AP01849

PATIENT
  Sex: Male

DRUGS (2)
  1. OMEPRAL [Suspect]
     Route: 048
     Dates: start: 20070317, end: 20070319
  2. MUCOSTA [Concomitant]
     Route: 048

REACTIONS (1)
  - OCULOMUCOCUTANEOUS SYNDROME [None]
